FAERS Safety Report 21352721 (Version 1)
Quarter: 2022Q3

REPORT INFORMATION
  Report Type: Spontaneous
  Country: US (occurrence: US)
  Receive Date: 20220920
  Receipt Date: 20220920
  Transmission Date: 20221027
  Serious: No
  Sender: FDA-Public Use
  Company Number: US-ELI_LILLY_AND_COMPANY-US202208011601

PATIENT
  Sex: Female

DRUGS (1)
  1. VERZENIO [Suspect]
     Active Substance: ABEMACICLIB
     Indication: Bone cancer
     Dosage: 150 MG, BID
     Route: 048

REACTIONS (5)
  - Skin wrinkling [Unknown]
  - Chest discomfort [Unknown]
  - Chest pain [Unknown]
  - Diarrhoea [Unknown]
  - Product dose omission issue [Unknown]
